FAERS Safety Report 7928017-0 (Version None)
Quarter: 2011Q4

REPORT INFORMATION
  Report Type: 
  Country: None (occurrence: None)
  Receive Date: 20111117
  Receipt Date: 20111117
  Transmission Date: 20120403
  Serious: Yes (Hospitalization)
  Sender: FDA-Public Use
  Company Number: None

PATIENT
  Sex: Female
  Weight: 90.7194 kg

DRUGS (1)
  1. REMICADE [Suspect]
     Dosage: IV
     Route: 042

REACTIONS (6)
  - FLUSHING [None]
  - ARTHRALGIA [None]
  - MUSCLE TIGHTNESS [None]
  - SERUM SICKNESS [None]
  - RASH [None]
  - JOINT SWELLING [None]
